FAERS Safety Report 5353486-2 (Version None)
Quarter: 2007Q2

REPORT INFORMATION
  Report Type: 
  Country: None (occurrence: None)
  Receive Date: 20070612
  Receipt Date: 20070605
  Transmission Date: 20071010
  Serious: Yes (Other)
  Sender: FDA-Public Use
  Company Number: PHEH2007US07590

PATIENT
  Sex: Female

DRUGS (2)
  1. AREDIA [Suspect]
     Indication: OSTEOPOROSIS
     Dosage: UNK, Q 3 MONTHS
     Route: 042
     Dates: start: 20000101, end: 20050701
  2. REMICADE [Concomitant]
     Dosage: UNK, UNK

REACTIONS (8)
  - ENDODONTIC PROCEDURE [None]
  - GINGIVAL DISORDER [None]
  - JAW DISORDER [None]
  - OSTEONECROSIS [None]
  - SALIVA ALTERED [None]
  - TOOTH DISORDER [None]
  - TOOTH FRACTURE [None]
  - TOOTH LOSS [None]
